FAERS Safety Report 8409581-4 (Version None)
Quarter: 2012Q2

REPORT INFORMATION
  Report Type: 
  Country: None (occurrence: None)
  Receive Date: 20120605
  Receipt Date: 20120531
  Transmission Date: 20120825
  Serious: Yes (Hospitalization)
  Sender: FDA-Public Use
  Company Number: IT-BAYER-2012-026818

PATIENT
  Age: 74 Year
  Sex: Male
  Weight: 56 kg

DRUGS (8)
  1. KANRENOL [Concomitant]
     Indication: HYPERTENSION
     Dosage: DAILY DOSE 100 MG
     Route: 048
     Dates: start: 20100615, end: 20120314
  2. FUROSEMIDE [Concomitant]
     Dosage: DAILY DOSE 25 MG
     Route: 048
     Dates: start: 20100615, end: 20120314
  3. INSULIN [Concomitant]
     Indication: DIABETES MELLITUS
     Dosage: UNK
  4. PANTOPRAZOLE [Concomitant]
     Dosage: DAILY DOSE 40 MG
     Route: 048
     Dates: start: 20100515, end: 20120314
  5. NEXAVAR [Suspect]
     Indication: HEPATIC NEOPLASM MALIGNANT
     Dosage: DAILY DOSE 400 MG
     Route: 048
     Dates: start: 20120301, end: 20120307
  6. MEGESTROL ACETATE [Concomitant]
     Dosage: DAILY DOSE 160 MG
     Route: 048
     Dates: start: 20080615, end: 20120314
  7. BISOPROLOL FUMARATE [Concomitant]
     Indication: SUPRAVENTRICULAR TACHYCARDIA
     Dosage: DAILY DOSE 1.25 MG
     Route: 048
     Dates: start: 20100615, end: 20120314
  8. LAEVOLAC [Concomitant]

REACTIONS (3)
  - HEPATIC ENCEPHALOPATHY [None]
  - CONFUSIONAL STATE [None]
  - APRAXIA [None]
